FAERS Safety Report 8993590 (Version 2)
Quarter: 2013Q1

REPORT INFORMATION
  Report Type: Spontaneous
  Country: US (occurrence: US)
  Receive Date: 20130102
  Receipt Date: 20130122
  Transmission Date: 20140127
  Serious: Yes (Hospitalization)
  Sender: FDA-Public Use
  Company Number: US-ROCHE-1174458

PATIENT
  Age: 54 Year
  Sex: Female

DRUGS (3)
  1. T-PA [Suspect]
     Indication: HEART INJURY
     Route: 065
  2. LIDOCAINE [Concomitant]
  3. NITROGLYCERIN [Concomitant]
     Route: 042

REACTIONS (3)
  - Chest pain [Recovered/Resolved]
  - Hypotension [Recovered/Resolved]
  - Cardiac tamponade [Recovered/Resolved]
